FAERS Safety Report 10211704 (Version 1)
Quarter: 2014Q2

REPORT INFORMATION
  Report Type: Spontaneous
  Country: IT (occurrence: None)
  Receive Date: 20140528
  Receipt Date: 20140528
  Transmission Date: 20141212
  Serious: Yes (Other)
  Sender: FDA-Public Use
  Company Number: 2014HINLIT0448

PATIENT
  Age: 20 Year
  Sex: Male

DRUGS (3)
  1. EMTRICITABINE +TENOFOVIR [Suspect]
     Indication: HIV INFECTION
  2. ATAZANAVIR/RITONAVIR (ATAZANAVIR/RITONAVIR) [Concomitant]
  3. ABACAVIR/LAMIVUDINE (ABACAVIR/LAMIVUDINE) [Concomitant]

REACTIONS (7)
  - Renal tubular disorder [None]
  - Genetic polymorphism [None]
  - Polyuria [None]
  - Polydipsia [None]
  - Myalgia [None]
  - Hypophosphataemia [None]
  - Glycosuria [None]
